FAERS Safety Report 10376135 (Version 1)
Quarter: 2014Q3

REPORT INFORMATION
  Report Type: Spontaneous
  Country: NL (occurrence: NL)
  Receive Date: 20140811
  Receipt Date: 20140811
  Transmission Date: 20150326
  Serious: Yes (Other)
  Sender: FDA-Public Use
  Company Number: NL-TEVA-499983ISR

PATIENT
  Sex: Male

DRUGS (5)
  1. OMEPRAZOL [Concomitant]
     Active Substance: OMEPRAZOLE
  2. METOPROLOL [Concomitant]
     Active Substance: METOPROLOL
  3. SIMVASTATINE 20 MG TEVA, FILMOMHULDE TABLETTEN [Suspect]
     Active Substance: SIMVASTATIN
     Indication: PRODUCT USED FOR UNKNOWN INDICATION
     Dates: start: 20140731
  4. CARBASALAATCALCIUM [Concomitant]
     Active Substance: CARBASALATE
  5. ENTOCORT [Concomitant]
     Active Substance: BUDESONIDE

REACTIONS (2)
  - Haematochezia [Not Recovered/Not Resolved]
  - Product substitution issue [Unknown]
